FAERS Safety Report 13622591 (Version 1)
Quarter: 2017Q2

REPORT INFORMATION
  Report Type: Spontaneous
  Country: US (occurrence: US)
  Receive Date: 20170607
  Receipt Date: 20170607
  Transmission Date: 20170830
  Serious: No
  Sender: FDA-Public Use
  Company Number: US-ROCHE-510332

PATIENT
  Sex: Male
  Weight: 90.7 kg

DRUGS (8)
  1. NORVIR [Concomitant]
     Active Substance: RITONAVIR
     Route: 065
  2. TRUVADA [Concomitant]
     Active Substance: EMTRICITABINE\TENOFOVIR DISOPROXIL FUMARATE
     Route: 065
  3. PREZISTA [Concomitant]
     Active Substance: DARUNAVIR ETHANOLATE
     Route: 065
  4. WELLBUTRIN [Concomitant]
     Active Substance: BUPROPION HYDROCHLORIDE
     Route: 065
  5. FUZEON [Suspect]
     Active Substance: ENFUVIRTIDE
     Indication: ACQUIRED IMMUNODEFICIENCY SYNDROME
     Route: 058
  6. LIPITOR [Concomitant]
     Active Substance: ATORVASTATIN CALCIUM
     Route: 065
  7. IMODIUM [Concomitant]
     Active Substance: LOPERAMIDE HYDROCHLORIDE
     Route: 065
  8. MERCK STUDY DRUG [Concomitant]
     Dosage: DRUG REPORTED AS STUDY DRUG FOR MERCK (1505)
     Route: 065

REACTIONS (2)
  - Injection site reaction [Not Recovered/Not Resolved]
  - Skin induration [Not Recovered/Not Resolved]
